FAERS Safety Report 5000695-8 (Version None)
Quarter: 2006Q2

REPORT INFORMATION
  Report Type: 
  Country: None (occurrence: None)
  Receive Date: 20060512
  Receipt Date: 20060505
  Transmission Date: 20061013
  Serious: Yes (Hospitalization)
  Sender: FDA-Public Use
  Company Number: US-AVENTIS-200614076US

PATIENT
  Sex: Female

DRUGS (1)
  1. ALLEGRA [Suspect]
     Dosage: DOSE: UNKNOWN

REACTIONS (3)
  - ABNORMAL FAECES [None]
  - CHOLELITHIASIS [None]
  - JAUNDICE [None]
